FAERS Safety Report 6788905-8 (Version None)
Quarter: 2010Q2

REPORT INFORMATION
  Report Type: 
  Country: None (occurrence: None)
  Receive Date: 20100623
  Receipt Date: 20080603
  Transmission Date: 20101027
  Serious: Yes (Other)
  Sender: FDA-Public Use
  Company Number: US-PFIZER INC-2008048505

PATIENT
  Age: 53 Year
  Sex: Female

DRUGS (2)
  1. GEODON [Suspect]
  2. ALL OTHER THERAPEUTIC PRODUCTS [Suspect]

REACTIONS (2)
  - BIPOLAR I DISORDER [None]
  - TREMOR [None]
